FAERS Safety Report 13121803 (Version 1)
Quarter: 2017Q1

REPORT INFORMATION
  Report Type: Spontaneous
  Country: US (occurrence: US)
  Receive Date: 20170117
  Receipt Date: 20170117
  Transmission Date: 20170428
  Serious: Yes (Hospitalization)
  Sender: FDA-Public Use
  Company Number: None

PATIENT
  Age: 70 Year
  Sex: Female
  Weight: 61.69 kg

DRUGS (7)
  1. OMEPRAZOLE. [Concomitant]
     Active Substance: OMEPRAZOLE
  2. CLONIDINE. [Concomitant]
     Active Substance: CLONIDINE
  3. CARVEDILOL. [Concomitant]
     Active Substance: CARVEDILOL
  4. LEVOFLOXACIN ZUDUS PHARMACEUTICALS [Suspect]
     Active Substance: LEVOFLOXACIN
     Indication: DIVERTICULITIS
     Dosage: ?          QUANTITY:1 PM.;?
     Route: 048
     Dates: start: 20160911, end: 20161017
  5. LEVOFLOXACIN ZUDUS PHARMACEUTICALS [Suspect]
     Active Substance: LEVOFLOXACIN
     Indication: INFECTION
     Dosage: ?          QUANTITY:1 PM.;?
     Route: 048
     Dates: start: 20160911, end: 20161017
  6. LEVOFLOXACIN ZUDUS PHARMACEUTICALS [Suspect]
     Active Substance: LEVOFLOXACIN
     Indication: DISEASE COMPLICATION
     Dosage: ?          QUANTITY:1 PM.;?
     Route: 048
     Dates: start: 20160911, end: 20161017
  7. LISINOPRIL. [Concomitant]
     Active Substance: LISINOPRIL

REACTIONS (2)
  - Pain [None]
  - Pain in extremity [None]

NARRATIVE: CASE EVENT DATE: 20160911
